FAERS Safety Report 25566315 (Version 1)
Quarter: 2025Q3

REPORT INFORMATION
  Report Type: Spontaneous
  Country: US (occurrence: US)
  Receive Date: 20250716
  Receipt Date: 20250716
  Transmission Date: 20251021
  Serious: Yes (Other)
  Sender: PFIZER
  Company Number: US-PFIZER INC-PV202400022388

PATIENT
  Age: 67 Year
  Sex: Female

DRUGS (2)
  1. IBRANCE [Suspect]
     Active Substance: PALBOCICLIB
  2. IBRANCE [Suspect]
     Active Substance: PALBOCICLIB

REACTIONS (6)
  - Blister [Unknown]
  - Pruritus [Unknown]
  - Sensitive skin [Unknown]
  - Second primary malignancy [Unknown]
  - Skin cancer [Unknown]
  - Arthralgia [Unknown]
